FAERS Safety Report 5772798-1 (Version None)
Quarter: 2008Q2

REPORT INFORMATION
  Report Type: 
  Country: None (occurrence: None)
  Receive Date: 20080611
  Receipt Date: 20080529
  Transmission Date: 20081010
  Serious: Yes (Death)
  Sender: FDA-Public Use
  Company Number: 2008S1009183

PATIENT
  Age: 35 Year
  Sex: Female
  Weight: 59.4212 kg

DRUGS (15)
  1. PROVIGIL [Suspect]
     Dosage: 200 MG; ORAL
     Route: 048
  2. OPANA ER [Suspect]
     Indication: PAIN
     Dosage: 20 MG;TWICE A DAY;ORAL
     Route: 048
     Dates: start: 20070407, end: 20080508
  3. OPANA ER [Suspect]
     Indication: PAIN
     Dosage: 6SEE IMAGE
     Route: 048
     Dates: start: 20070509
  4. OPANA ER [Suspect]
     Indication: PAIN
     Dosage: 6SEE IMAGE
     Route: 048
     Dates: start: 20070509
  5. OPANA ER [Suspect]
     Indication: PAIN
     Dosage: 6SEE IMAGE
     Route: 048
     Dates: start: 20070509
  6. OPANA [Suspect]
     Indication: BREAKTHROUGH PAIN
     Dosage: 5 MG;Q12H;ORAL
     Route: 048
     Dates: start: 20070407, end: 20070508
  7. OPANA [Suspect]
     Indication: BREAKTHROUGH PAIN
     Dosage: 5 MG;3 TIMES A DAY;ORAL
     Route: 048
     Dates: start: 20070509
  8. DURAGESIC-100 [Suspect]
     Indication: PAIN
     Dosage: 100 UG;EVERY HOUR;TRANSDERMAL
     Route: 062
     Dates: start: 20070401, end: 20070501
  9. VICODIN ES [Suspect]
     Indication: PAIN
     Dosage: 4 TIMES A DAY;ORAL
     Route: 048
  10. AMITRIPTYLINE HCL [Suspect]
     Dosage: 300 MG;AT BEDTIME;ORAL
     Route: 048
  11. ZOLOFT [Suspect]
     Dosage: 100 MG;DAILY;ORAL
     Route: 048
  12. LEVOTHYROXINE SODIUM [Suspect]
     Dosage: ;DAILY;ORAL
     Route: 048
  13. LUNESTA [Suspect]
     Dosage: 3 MG;AT BEDTIME;ORAL
     Route: 048
  14. CLONAZEPAM [Suspect]
     Dosage: 2 MG;3 TIMES A DAY;ORAL
     Route: 048
  15. ARAVA [Suspect]
     Indication: RHEUMATOID ARTHRITIS
     Dosage: 20 MG;DAILY;ORAL
     Route: 048
     Dates: end: 20070401

REACTIONS (7)
  - ACCIDENTAL DEATH [None]
  - BRAIN OEDEMA [None]
  - BREAKTHROUGH PAIN [None]
  - DRUG TOXICITY [None]
  - INADEQUATE ANALGESIA [None]
  - PULMONARY CONGESTION [None]
  - PULMONARY OEDEMA [None]
